FAERS Safety Report 8380280 (Version 2)
Quarter: 2013Q1

REPORT INFORMATION
  Report Type: Spontaneous
  Country: US (occurrence: US)
  Receive Date: 20120129
  Receipt Date: 20130129
  Transmission Date: 20140127
  Serious: Yes (Other)
  Sender: FDA-Public Use
  Company Number: US-ABBOTT-11P-163-0875746-00

PATIENT
  Age: 55 Year
  Sex: Female
  Weight: 97.61 kg

DRUGS (5)
  1. HUMIRA 40 MG/ 0.8 ML PRE-FILLED SYRINGE [Suspect]
     Indication: PSORIASIS
     Dates: start: 20090416, end: 201110
  2. TACLONEX [Concomitant]
     Indication: PSORIASIS
     Route: 061
     Dates: start: 20090226
  3. LOTENSIN HCT [Concomitant]
     Indication: HYPERTENSION
     Dosage: 20/12.5MG PO QD
     Route: 048
  4. NIASPAN [Concomitant]
     Indication: PRODUCT USED FOR UNKNOWN INDICATION
  5. MOTRIN [Concomitant]
     Indication: PRODUCT USED FOR UNKNOWN INDICATION

REACTIONS (3)
  - Ovarian cancer [Recovered/Resolved]
  - Back pain [Unknown]
  - Pain in extremity [Unknown]
